FAERS Safety Report 25626033 (Version 1)
Quarter: 2025Q3

REPORT INFORMATION
  Report Type: Spontaneous
  Country: AU (occurrence: AU)
  Receive Date: 20250731
  Receipt Date: 20250731
  Transmission Date: 20251020
  Serious: Yes (Other)
  Sender: NOVO NORDISK
  Company Number: AU-NOVOPROD-1459527

PATIENT
  Age: 61 Year
  Sex: Male

DRUGS (5)
  1. OZEMPIC [Suspect]
     Active Substance: SEMAGLUTIDE
     Indication: Type 2 diabetes mellitus
     Dosage: 0.25 MG, QW
  2. OZEMPIC [Suspect]
     Active Substance: SEMAGLUTIDE
  3. OZEMPIC [Suspect]
     Active Substance: SEMAGLUTIDE
  4. OZEMPIC [Suspect]
     Active Substance: SEMAGLUTIDE
  5. OZEMPIC [Suspect]
     Active Substance: SEMAGLUTIDE

REACTIONS (12)
  - Malaise [Unknown]
  - Pneumothorax [Unknown]
  - Weight decreased [Unknown]
  - Malnutrition [Unknown]
  - Blood disorder [Unknown]
  - Dyspnoea [Unknown]
  - Food craving [Unknown]
  - Hunger [Unknown]
  - COVID-19 [Recovered/Resolved]
  - Wrong technique in product usage process [Unknown]
  - Product use issue [Unknown]
  - Off label use [Unknown]
